FAERS Safety Report 6504824-6 (Version None)
Quarter: 2009Q4

REPORT INFORMATION
  Report Type: 
  Country: None (occurrence: None)
  Receive Date: 20091216
  Receipt Date: 20091130
  Transmission Date: 20100525
  Serious: Yes (Other)
  Sender: FDA-Public Use
  Company Number: 002723

PATIENT
  Sex: Female

DRUGS (1)
  1. KEPPRA [Suspect]
     Indication: EPILEPSY

REACTIONS (4)
  - DEPRESSION [None]
  - MOOD SWINGS [None]
  - SUICIDAL IDEATION [None]
  - VISUAL IMPAIRMENT [None]
